FAERS Safety Report 21452797 (Version 1)
Quarter: 2022Q4

REPORT INFORMATION
  Report Type: Spontaneous
  Country: CN (occurrence: None)
  Receive Date: 20221013
  Receipt Date: 20221013
  Transmission Date: 20230113
  Serious: Yes (Other)
  Sender: FDA-Public Use
  Company Number: CN-ROCHE-3196713

PATIENT
  Age: 57 Year
  Sex: Female

DRUGS (14)
  1. XELODA [Suspect]
     Active Substance: CAPECITABINE
     Indication: Breast cancer
     Route: 065
     Dates: start: 20200601, end: 20200723
  2. XELODA [Suspect]
     Active Substance: CAPECITABINE
     Route: 065
     Dates: start: 202008, end: 202010
  3. XELODA [Suspect]
     Active Substance: CAPECITABINE
     Route: 065
     Dates: start: 202010, end: 202102
  4. XELODA [Suspect]
     Active Substance: CAPECITABINE
     Dosage: TRASTUZUMAB + CAPECITABINE
     Route: 065
     Dates: start: 2021
  5. HERCEPTIN [Suspect]
     Active Substance: TRASTUZUMAB
     Indication: Breast cancer
     Route: 065
     Dates: start: 202008, end: 202010
  6. HERCEPTIN [Suspect]
     Active Substance: TRASTUZUMAB
     Route: 065
     Dates: start: 202010, end: 202102
  7. HERCEPTIN [Suspect]
     Active Substance: TRASTUZUMAB
     Dosage: TRASTUZUMAB + CAPECITABINE
     Route: 065
     Dates: start: 2021
  8. HERCEPTIN [Suspect]
     Active Substance: TRASTUZUMAB
     Dosage: TRASTUZUMAB + PACLITAXEL FOR INJECTION (ALBUMIN BOUND)
     Route: 065
     Dates: start: 2021
  9. HERCEPTIN [Suspect]
     Active Substance: TRASTUZUMAB
     Dosage: TRASTUZUMAB + PACLITAXEL FOR INJECTION (ALBUMIN BOUND) + TEGAFUR, GIMERACIL AND OTERACIL POTASSIUM C
     Route: 065
     Dates: start: 20210603
  10. PACLITAXEL [Suspect]
     Active Substance: PACLITAXEL
     Indication: Breast cancer
     Route: 065
     Dates: start: 202008, end: 202010
  11. PACLITAXEL [Suspect]
     Active Substance: PACLITAXEL
     Dosage: TRASTUZUMAB + PACLITAXEL FOR INJECTION (ALBUMIN BOUND)
     Route: 065
     Dates: start: 2021
  12. PACLITAXEL [Suspect]
     Active Substance: PACLITAXEL
     Dosage: TRASTUZUMAB + PACLITAXEL FOR INJECTION (ALBUMIN BOUND) + TEGAFUR, GIMERACIL AND OTERACIL POTASSIUM C
     Route: 065
     Dates: start: 20210603
  13. PYROTINIB [Concomitant]
     Active Substance: PYROTINIB
     Indication: Breast cancer
     Route: 048
  14. GIMERACIL\OTERACIL\TEGAFUR [Concomitant]
     Active Substance: GIMERACIL\OTERACIL\TEGAFUR
     Indication: Breast cancer
     Route: 065
     Dates: start: 20210603

REACTIONS (4)
  - Myelosuppression [Unknown]
  - Decreased appetite [Unknown]
  - Hepatic function abnormal [Unknown]
  - Palmar-plantar erythrodysaesthesia syndrome [Unknown]
